FAERS Safety Report 9539156 (Version 1)
Quarter: 2013Q2

REPORT INFORMATION
  Report Type: Spontaneous
  Country: US (occurrence: None)
  Receive Date: 20130521
  Receipt Date: 20130521
  Transmission Date: 20140414
  Serious: No
  Sender: FDA-Public Use
  Company Number: 1000043050

PATIENT
  Age: 69 Year
  Sex: Female

DRUGS (6)
  1. TUDORZA PRESSAIR (ACLIDINIUM BROMIDE) (400 MICROGRAM, POWDER) [Suspect]
     Indication: CHRONIC OBSTRUCTIVE PULMONARY DISEASE
     Dosage: 800MCG (400 MCG,2 IN 1 D), RESPIRATORY (INHALATION)
     Route: 055
     Dates: start: 20130228
  2. SOTALOL (SOTALOL) (SOTALOL) [Concomitant]
  3. ADVAIR (SERETIDE) (SERETIDE) [Concomitant]
  4. SINGULAIR (MONTELUKAST SODIUM) (MONTELUKAST SODIUM) [Concomitant]
  5. LEVOTHYROXINE (LEVOTHYROXINE SODIUM) (LEVOTHYROXINE SODIUM)? [Concomitant]
  6. CLONIDINE (CLONIDINE) (CLONIDINE) [Concomitant]

REACTIONS (3)
  - Nausea [None]
  - Vomiting [None]
  - Palpitations [None]
